FAERS Safety Report 18905005 (Version 1)
Quarter: 2021Q1

REPORT INFORMATION
  Report Type: Spontaneous
  Country: GB (occurrence: GB)
  Receive Date: 20210217
  Receipt Date: 20210217
  Transmission Date: 20210420
  Serious: No
  Sender: FDA-Public Use
  Company Number: GB-ELI_LILLY_AND_COMPANY-GB202102005331

PATIENT
  Age: 45 Year
  Sex: Female
  Weight: 57.6 kg

DRUGS (8)
  1. NOVORAPID [Concomitant]
     Active Substance: INSULIN ASPART
     Indication: ILL-DEFINED DISORDER
     Dosage: UNK, UNKNOWN
     Route: 065
  2. ATORVASTATIN [Concomitant]
     Active Substance: ATORVASTATIN
     Indication: ILL-DEFINED DISORDER
     Dosage: UNK, UNKNOWN
     Route: 065
  3. FOLIC ACID. [Concomitant]
     Active Substance: FOLIC ACID
     Indication: ILL-DEFINED DISORDER
     Dosage: UNK, UNKNOWN
     Route: 065
  4. METHOTREXATE. [Concomitant]
     Active Substance: METHOTREXATE
     Indication: ILL-DEFINED DISORDER
     Dosage: UNK, UNKNOWN
     Route: 065
  5. ZAPAIN [Concomitant]
     Active Substance: ACETAMINOPHEN\CODEINE PHOSPHATE
     Indication: ILL-DEFINED DISORDER
     Dosage: UNK UNK, UNKNOWN
     Route: 065
  6. DULOXETINE HYDROCHLORIDE. [Suspect]
     Active Substance: DULOXETINE HYDROCHLORIDE
     Indication: DEPRESSION
     Dosage: 30 MG, UNKNOWN
     Route: 048
     Dates: start: 20210106
  7. DULOXETINE HYDROCHLORIDE. [Suspect]
     Active Substance: DULOXETINE HYDROCHLORIDE
     Dosage: 90 MG, DAILY
     Route: 048
     Dates: end: 20210208
  8. LANTUS [Concomitant]
     Active Substance: INSULIN GLARGINE
     Indication: ILL-DEFINED DISORDER
     Dosage: UNK, UNKNOWN
     Route: 065

REACTIONS (1)
  - Hepatic enzyme increased [Unknown]

NARRATIVE: CASE EVENT DATE: 20210106
